FAERS Safety Report 25263834 (Version 2)
Quarter: 2025Q2

REPORT INFORMATION
  Report Type: Spontaneous
  Country: US (occurrence: US)
  Receive Date: 20250502
  Receipt Date: 20250522
  Transmission Date: 20250716
  Serious: No
  Sender: BAYER HEALTHCARE PHARMACEUTICALS INC.
  Company Number: US-BAYER-2025A056877

PATIENT
  Age: 35 Year
  Sex: Female

DRUGS (4)
  1. MIRENA [Suspect]
     Active Substance: LEVONORGESTREL
     Indication: Contraception
     Dosage: 20?G/DAY
     Route: 015
     Dates: start: 202503
  2. LUMRYZ [Concomitant]
     Active Substance: SODIUM OXYBATE
     Dosage: 4.5 G, HS
     Route: 048
     Dates: start: 20250405
  3. LUMRYZ [Concomitant]
     Active Substance: SODIUM OXYBATE
     Dosage: 6 G, HS
     Route: 048
  4. LUMRYZ [Concomitant]
     Active Substance: SODIUM OXYBATE
     Dosage: 7.5 G, HS
     Route: 048

REACTIONS (1)
  - Decreased appetite [None]

NARRATIVE: CASE EVENT DATE: 20250405
